FAERS Safety Report 14655196 (Version 1)
Quarter: 2018Q1

REPORT INFORMATION
  Report Type: Spontaneous
  Country: FR (occurrence: FR)
  Receive Date: 20180319
  Receipt Date: 20180319
  Transmission Date: 20180509
  Serious: Yes (Hospitalization)
  Sender: FDA-Public Use
  Company Number: PHHY2018FR047268

PATIENT
  Age: 101 Year
  Sex: Female
  Weight: 47 kg

DRUGS (3)
  1. BISOPROLOL [Suspect]
     Active Substance: BISOPROLOL
     Indication: ATRIAL FIBRILLATION
     Dosage: 1.25 MG, QD
     Route: 048
     Dates: start: 20180108, end: 20180116
  2. CEFTRIAXONE. [Suspect]
     Active Substance: CEFTRIAXONE
     Indication: PNEUMONIA ASPIRATION
     Dosage: 1 G, QD
     Route: 058
     Dates: start: 20180109, end: 20180116
  3. ELIQUIS [Suspect]
     Active Substance: APIXABAN
     Indication: ATRIAL FIBRILLATION
     Dosage: 2 DF, UNK
     Route: 048
     Dates: start: 20180101, end: 20180116

REACTIONS (2)
  - Dermatitis bullous [Not Recovered/Not Resolved]
  - Haematoma [Not Recovered/Not Resolved]

NARRATIVE: CASE EVENT DATE: 20180115
